FAERS Safety Report 17507389 (Version 1)
Quarter: 2020Q1

REPORT INFORMATION
  Report Type: Spontaneous
  Country: RU (occurrence: RU)
  Receive Date: 20200306
  Receipt Date: 20200306
  Transmission Date: 20200409
  Serious: Yes (Life-Threatening)
  Sender: FDA-Public Use
  Company Number: RU-TEVA-2020-RU-1193431

PATIENT
  Age: 35 Year
  Sex: Female

DRUGS (1)
  1. TOPSAVER [Suspect]
     Active Substance: TOPIRAMATE
     Indication: EPILEPSY
     Dosage: DAILY DOSE- 350 / 350 MG?SINGLE DOSE - 150 / 150 MG
     Route: 048
     Dates: start: 20160901

REACTIONS (1)
  - Drug ineffective [Unknown]

NARRATIVE: CASE EVENT DATE: 20160901
